FAERS Safety Report 17000649 (Version 1)
Quarter: 2019Q4

REPORT INFORMATION
  Report Type: Spontaneous
  Country: US (occurrence: US)
  Receive Date: 20191106
  Receipt Date: 20191106
  Transmission Date: 20200122
  Serious: Yes (Other)
  Sender: FDA-Public Use
  Company Number: US-BRISTOL-MYERS SQUIBB COMPANY-BMS-2019-105834

PATIENT
  Age: 79 Year
  Sex: Male
  Weight: 101.15 kg

DRUGS (1)
  1. BARACLUDE [Suspect]
     Active Substance: ENTECAVIR
     Indication: LIVER TRANSPLANT
     Dosage: UNAVAILABLE, AT EVERY 3 DAY
     Route: 048
     Dates: start: 201312

REACTIONS (1)
  - Macular degeneration [Unknown]
